FAERS Safety Report 25257373 (Version 1)
Quarter: 2025Q2

REPORT INFORMATION
  Report Type: Spontaneous
  Country: US (occurrence: US)
  Receive Date: 20250430
  Receipt Date: 20250430
  Transmission Date: 20250716
  Serious: Yes (Other)
  Sender: AMGEN
  Company Number: US-AMGEN-USASP2025080651

PATIENT
  Age: 22 Year
  Sex: Female

DRUGS (3)
  1. RITUXIMAB [Suspect]
     Active Substance: RITUXIMAB
     Indication: Glomerulonephritis membranous
     Route: 065
  2. PREDNISONE [Suspect]
     Active Substance: PREDNISONE
     Indication: Immunosuppressant drug therapy
     Route: 065
  3. TACROLIMUS [Concomitant]
     Active Substance: TACROLIMUS
     Indication: Immunosuppressant drug therapy

REACTIONS (9)
  - Kidney fibrosis [Unknown]
  - Renal tubular atrophy [Unknown]
  - Cytomegalovirus viraemia [Unknown]
  - Glomerulonephritis membranous [Unknown]
  - Kidney transplant rejection [Unknown]
  - Donor specific antibody present [Unknown]
  - Drug effective for unapproved indication [Unknown]
  - Maternal exposure during pregnancy [Unknown]
  - Off label use [Unknown]
